FAERS Safety Report 9324734 (Version 2)
Quarter: 2013Q2

REPORT INFORMATION
  Report Type: Spontaneous
  Country: JP (occurrence: JP)
  Receive Date: 20130603
  Receipt Date: 20130627
  Transmission Date: 20140414
  Serious: Yes (Hospitalization, Disabling)
  Sender: FDA-Public Use
  Company Number: JP-B.I. PHARMACEUTICALS,INC./RIDGEFIELD-2013-BI-15272NB

PATIENT
  Age: 87 Year
  Sex: Male
  Weight: 65 kg

DRUGS (14)
  1. PRAZAXA [Suspect]
     Indication: THROMBOSIS PROPHYLAXIS
     Dosage: 220 MG
     Route: 048
     Dates: start: 20120428
  2. FERROMIA [Concomitant]
     Indication: ANAEMIA
     Dosage: 50 MG
     Route: 048
     Dates: start: 20130119
  3. OMEPRAL [Concomitant]
     Indication: GASTRIC ULCER
     Dosage: 10 MG
     Route: 048
     Dates: start: 20050108, end: 20130608
  4. SELARA [Concomitant]
     Indication: PLEURAL EFFUSION
     Dosage: 25 MG
     Route: 048
     Dates: start: 20120707
  5. LASIX [Concomitant]
     Indication: PLEURAL EFFUSION
     Dosage: 10 MG
     Route: 048
  6. FLIVAS OD [Concomitant]
     Indication: DYSURIA
     Dosage: 50 MG
     Route: 048
     Dates: start: 20130118
  7. AVOLVE [Concomitant]
     Indication: DYSURIA
     Dosage: 0.5 MG
     Route: 048
     Dates: start: 20130118
  8. ALOSENN [Concomitant]
     Dosage: 0.5 G
     Route: 048
  9. NEODOPASOL [Concomitant]
     Indication: PARKINSONISM
     Route: 048
     Dates: start: 20070828
  10. TRAMCET [Concomitant]
     Route: 065
  11. FEXOFENADINE [Concomitant]
     Indication: HYPERSENSITIVITY
     Dosage: 120 MG
     Route: 048
     Dates: end: 20130527
  12. CELECOX [Concomitant]
     Dosage: 200 MG
     Route: 048
     Dates: start: 20130406, end: 20130506
  13. CYTOTEC [Concomitant]
     Dosage: 600 MCG
     Route: 048
     Dates: start: 20130406, end: 20130506
  14. TERNELIN [Concomitant]
     Route: 048
     Dates: start: 20130406, end: 20130506

REACTIONS (4)
  - Embolic stroke [Recovered/Resolved with Sequelae]
  - Fall [Unknown]
  - Subcutaneous haematoma [Unknown]
  - Drug effect incomplete [Unknown]
